FAERS Safety Report 15551936 (Version 3)
Quarter: 2020Q3

REPORT INFORMATION
  Report Type: Spontaneous
  Country: BG (occurrence: BG)
  Receive Date: 20181025
  Receipt Date: 20200701
  Transmission Date: 20201102
  Serious: Yes (Life-Threatening, Other)
  Sender: FDA-Public Use
  Company Number: PHHY2018BG136526

PATIENT
  Age: 38 Year
  Sex: Male

DRUGS (1)
  1. OXALIPLATIN. [Suspect]
     Active Substance: OXALIPLATIN
     Indication: COLON CANCER
     Dosage: UNK
     Route: 065

REACTIONS (9)
  - Pulmonary toxicity [Unknown]
  - Lymphangiosis carcinomatosa [Unknown]
  - Pulmonary sarcoidosis [Unknown]
  - Tuberculosis [Unknown]
  - Metastases to lung [Unknown]
  - Sarcoidosis [Recovered/Resolved]
  - Actinomycotic pulmonary infection [Unknown]
  - Pneumoconiosis [Unknown]
  - Skin lesion [Unknown]
